FAERS Safety Report 4335312-3 (Version None)
Quarter: 2004Q2

REPORT INFORMATION
  Report Type: 
  Country: None (occurrence: None)
  Receive Date: 20040408
  Receipt Date: 20040408
  Transmission Date: 20050107
  Serious: Yes (Life-Threatening)
  Sender: FDA-Public Use
  Company Number: None

PATIENT
  Age: 68 Year
  Sex: Male

DRUGS (7)
  1. TACROLIMUS [Suspect]
     Indication: LIVER TRANSPLANT
     Dosage: 1 MG PO BID
     Route: 048
     Dates: end: 20040123
  2. SIROLIMUS [Suspect]
     Dosage: 7 MG PO QD
     Route: 048
     Dates: start: 20040125, end: 20040127
  3. LANSOPRAZOLE [Concomitant]
  4. ACYCLOVIR [Concomitant]
  5. URSODIOL [Concomitant]
  6. TRIMETHOPRIM/SULF. [Concomitant]
  7. AMPICILLIN/SURB. [Concomitant]

REACTIONS (6)
  - BLOOD CREATINE INCREASED [None]
  - BLOOD POTASSIUM INCREASED [None]
  - BLOOD UREA INCREASED [None]
  - CARDIOMYOPATHY [None]
  - EJECTION FRACTION DECREASED [None]
  - MYOCARDIAL INFARCTION [None]
